FAERS Safety Report 6558766-0 (Version None)
Quarter: 2010Q1

REPORT INFORMATION
  Report Type: 
  Country: None (occurrence: None)
  Receive Date: 20100129
  Receipt Date: 20100119
  Transmission Date: 20100710
  Serious: No
  Sender: FDA-Public Use
  Company Number: US-B.I. PHARMACEUTICALS,INC./RIDGEFIELD-2010-BP-00591BP

PATIENT
  Age: 85 Year
  Sex: Male

DRUGS (2)
  1. AGGRENOX [Suspect]
     Indication: CEREBROVASCULAR ACCIDENT PROPHYLAXIS
     Route: 048
     Dates: start: 20100112
  2. ERYTHROMYCIN [Concomitant]
     Indication: SINUSITIS
     Dates: start: 20100112

REACTIONS (3)
  - ASTHENIA [None]
  - FATIGUE [None]
  - MALAISE [None]
